FAERS Safety Report 9550677 (Version 1)
Quarter: 2013Q3

REPORT INFORMATION
  Report Type: Spontaneous
  Country: US (occurrence: US)
  Receive Date: 20130924
  Receipt Date: 20130924
  Transmission Date: 20140515
  Serious: No
  Sender: FDA-Public Use
  Company Number: US-SANOFI-AVENTIS-2013SA045751

PATIENT
  Age: 41 Year
  Sex: Male
  Weight: 81.64 kg

DRUGS (3)
  1. AUBAGIO [Suspect]
     Indication: MULTIPLE SCLEROSIS
     Route: 048
     Dates: start: 20130405
  2. NEURONTIN [Concomitant]
     Indication: PAIN
     Dates: start: 20130301
  3. NEURONTIN [Concomitant]
     Indication: NAUSEA
     Dates: start: 20130301

REACTIONS (3)
  - Nausea [Recovering/Resolving]
  - Diarrhoea [Unknown]
  - Drug dose omission [Unknown]
